FAERS Safety Report 7817284-X (Version None)
Quarter: 2011Q4

REPORT INFORMATION
  Report Type: 
  Country: None (occurrence: None)
  Receive Date: 20111017
  Receipt Date: 20111011
  Transmission Date: 20120403
  Serious: No
  Sender: FDA-Public Use
  Company Number: US-PFIZER INC-2011243058

PATIENT
  Age: 28 Year
  Sex: Male
  Weight: 77.098 kg

DRUGS (2)
  1. VIAGRA [Suspect]
     Indication: ERECTILE DYSFUNCTION
     Dosage: 100 MG, AS NEEDED
     Dates: start: 20110101
  2. ZYPREXA [Concomitant]
     Indication: ANXIETY
     Dosage: 5 MG, AS NEEDED

REACTIONS (2)
  - ERECTILE DYSFUNCTION [None]
  - EJACULATION DISORDER [None]
